FAERS Safety Report 6532463-X (Version None)
Quarter: 2010Q1

REPORT INFORMATION
  Report Type: 
  Country: None (occurrence: None)
  Receive Date: 20100111
  Receipt Date: 20091230
  Transmission Date: 20100710
  Serious: Yes (Hospitalization)
  Sender: FDA-Public Use
  Company Number: US-BIOGENIDEC-2009BI036227

PATIENT
  Age: 69 Year
  Sex: Female

DRUGS (5)
  1. TYSABRI [Suspect]
     Indication: MULTIPLE SCLEROSIS
     Route: 042
     Dates: start: 20080617
  2. PROVIGIL [Concomitant]
     Indication: FATIGUE
  3. PAXIL [Concomitant]
     Indication: DEPRESSION
  4. ZOCOR [Concomitant]
     Indication: BLOOD CHOLESTEROL
  5. PENTASA [Concomitant]
     Indication: INFLAMMATORY BOWEL DISEASE

REACTIONS (2)
  - FALL [None]
  - OPEN FRACTURE [None]
